FAERS Safety Report 5278983-X (Version None)
Quarter: 2007Q1

REPORT INFORMATION
  Report Type: 
  Country: None (occurrence: None)
  Receive Date: 20070328
  Receipt Date: 20070326
  Transmission Date: 20070707
  Serious: Yes (Hospitalization)
  Sender: FDA-Public Use
  Company Number: 200410878JP

PATIENT
  Age: 77 Year
  Sex: Male
  Weight: 62 kg

DRUGS (3)
  1. ARAVA [Suspect]
     Indication: POLYMYALGIA RHEUMATICA
     Route: 048
     Dates: start: 20040107, end: 20040229
  2. PREDONINE                          /00016201/ [Concomitant]
     Indication: POLYMYALGIA RHEUMATICA
     Route: 048
  3. AZULFIDINE [Concomitant]
     Indication: POLYMYALGIA RHEUMATICA
     Route: 048
     Dates: end: 20040302

REACTIONS (10)
  - ALANINE AMINOTRANSFERASE INCREASED [None]
  - ASPARTATE AMINOTRANSFERASE INCREASED [None]
  - BLOOD ALKALINE PHOSPHATASE INCREASED [None]
  - BLOOD BILIRUBIN INCREASED [None]
  - BLOOD LACTATE DEHYDROGENASE INCREASED [None]
  - GAMMA-GLUTAMYLTRANSFERASE INCREASED [None]
  - GLUCOSE URINE PRESENT [None]
  - JAUNDICE [None]
  - LIVER DISORDER [None]
  - PRURITUS GENERALISED [None]
